FAERS Safety Report 15687407 (Version 3)
Quarter: 2018Q4

REPORT INFORMATION
  Report Type: Other
  Country: ES (occurrence: ES)
  Receive Date: 20181205
  Receipt Date: 20181219
  Transmission Date: 20190205
  Serious: Yes (Hospitalization, Other)
  Sender: FDA-Public Use
  Company Number: ES-APOTEX-2018AP026138

PATIENT
  Age: 50 Year
  Sex: Female

DRUGS (8)
  1. ASPIRIN                            /00002701/ [Suspect]
     Active Substance: ASPIRIN
     Indication: ANTIPLATELET THERAPY
     Dosage: DOSAGE FORM: UNSPECIFIED
     Route: 065
  2. CLOPIDOGREL [Suspect]
     Active Substance: CLOPIDOGREL BISULFATE
     Indication: ANTIPLATELET THERAPY
     Dosage: DOSAGE FORM: UNSPECIFIED
     Route: 065
  3. CLOPIDOGREL [Suspect]
     Active Substance: CLOPIDOGREL BISULFATE
     Dosage: DOSAGE FORM: UNSPECIFIED
     Route: 065
  4. ASPIRIN                            /00002701/ [Suspect]
     Active Substance: ASPIRIN
     Dosage: 1 MG/KG, QD, BID
     Route: 065
  5. ENOXAPARIN [Suspect]
     Active Substance: ENOXAPARIN
     Indication: ANTICOAGULANT THERAPY
     Dosage: DOSAGE FORM: UNSPECIFIED
     Route: 058
  6. CLOPIDOGREL [Suspect]
     Active Substance: CLOPIDOGREL BISULFATE
     Dosage: 1 MG/KG, BID
     Route: 065
  7. ASPIRIN                            /00002701/ [Suspect]
     Active Substance: ASPIRIN
     Dosage: DOSAGE FORM: UNSPECIFIED
     Route: 065
  8. ABCIXIMAB [Suspect]
     Active Substance: ABCIXIMAB
     Indication: CATHETER PLACEMENT
     Route: 040

REACTIONS (7)
  - Ecchymosis [Recovered/Resolved]
  - Labelled drug-drug interaction medication error [Unknown]
  - Melaena [Unknown]
  - Petechiae [Recovered/Resolved]
  - Hypotension [Unknown]
  - Immune thrombocytopenic purpura [Recovered/Resolved]
  - Anaemia [Recovering/Resolving]
